FAERS Safety Report 18550658 (Version 2)
Quarter: 2020Q4

REPORT INFORMATION
  Report Type: Spontaneous
  Country: US (occurrence: US)
  Receive Date: 20201126
  Receipt Date: 20201224
  Transmission Date: 20210114
  Serious: Yes (Hospitalization, Other)
  Sender: FDA-Public Use
  Company Number: US-PFIZER INC-2020465580

PATIENT
  Age: 67 Year
  Sex: Female
  Weight: 56.7 kg

DRUGS (1)
  1. XELJANZ XR [Suspect]
     Active Substance: TOFACITINIB CITRATE
     Indication: RHEUMATOID ARTHRITIS
     Dosage: 11 MG, 1X/DAY
     Route: 048
     Dates: end: 202010

REACTIONS (11)
  - Diarrhoea [Recovering/Resolving]
  - Condition aggravated [Not Recovered/Not Resolved]
  - Diverticulitis [Unknown]
  - Fatigue [Unknown]
  - Large intestine infection [Not Recovered/Not Resolved]
  - Drug ineffective [Unknown]
  - Anaemia [Not Recovered/Not Resolved]
  - Pain [Unknown]
  - Rheumatoid arthritis [Unknown]
  - Immune system disorder [Not Recovered/Not Resolved]
  - Asthenia [Unknown]
